FAERS Safety Report 20953170 (Version 1)
Quarter: 2022Q2

REPORT INFORMATION
  Report Type: Report from Study
  Country: US (occurrence: US)
  Receive Date: 20220613
  Receipt Date: 20220613
  Transmission Date: 20220720
  Serious: Yes (Death, Other)
  Sender: FDA-Public Use
  Company Number: US-GILEAD-2022-0585532

PATIENT
  Age: 46 Year
  Sex: Male

DRUGS (1)
  1. SACITUZUMAB GOVITECAN [Suspect]
     Active Substance: SACITUZUMAB GOVITECAN
     Indication: Renal cancer
     Dosage: 1 DOSAGE FORM
     Route: 042
     Dates: start: 20220405, end: 20220405

REACTIONS (2)
  - Death [Fatal]
  - Disease progression [Unknown]
